FAERS Safety Report 8556057-X (Version None)
Quarter: 2012Q3

REPORT INFORMATION
  Report Type: 
  Country: None (occurrence: None)
  Receive Date: 20120719
  Receipt Date: 20120704
  Transmission Date: 20120928
  Serious: Yes (Other)
  Sender: FDA-Public Use
  Company Number: MCA-N-12-085

PATIENT
  Age: 6 Year
  Sex: Female

DRUGS (1)
  1. LEVETIRACETAM [Suspect]
     Indication: CONVULSION
     Dosage: 15 MG/KG/DAY - 53 MG/KG

REACTIONS (12)
  - SOCIAL PROBLEM [None]
  - MOTOR DYSFUNCTION [None]
  - HEADACHE [None]
  - PARTIAL SEIZURES [None]
  - DYSPHEMIA [None]
  - FALL [None]
  - COMMUNICATION DISORDER [None]
  - FLAT AFFECT [None]
  - STEREOTYPY [None]
  - SPEECH DISORDER [None]
  - VOMITING [None]
  - AGGRESSION [None]
